FAERS Safety Report 9225714 (Version 1)
Quarter: 2013Q2

REPORT INFORMATION
  Report Type: Spontaneous
  Country: US (occurrence: None)
  Receive Date: 20130410
  Receipt Date: 20130410
  Transmission Date: 20140414
  Serious: Yes (Hospitalization)
  Sender: FDA-Public Use
  Company Number: None

PATIENT
  Age: 86 Year
  Sex: Female
  Weight: 57.5 kg

DRUGS (7)
  1. PLAVIX [Suspect]
     Indication: CEREBROVASCULAR ACCIDENT
     Dosage: CHRONIC USE 75MG DAILY PO
     Route: 048
  2. CYMBALTA [Concomitant]
  3. PLAQUENIL [Concomitant]
  4. NIFEDIPINE [Concomitant]
  5. FIBERCON [Concomitant]
  6. SIMVASTATIN [Concomitant]
  7. BUDESONIDE [Concomitant]

REACTIONS (4)
  - Upper gastrointestinal haemorrhage [None]
  - Hiatus hernia [None]
  - Gastric polyps [None]
  - Gastritis erosive [None]
